FAERS Safety Report 13179197 (Version 1)
Quarter: 2017Q1

REPORT INFORMATION
  Report Type: Spontaneous
  Country: US (occurrence: US)
  Receive Date: 20170201
  Receipt Date: 20170201
  Transmission Date: 20170428
  Serious: Yes (Death, Other)
  Sender: FDA-Public Use
  Company Number: None

PATIENT
  Age: 30 Year
  Sex: Female
  Weight: 164.25 kg

DRUGS (2)
  1. SAXENDA [Suspect]
     Active Substance: LIRAGLUTIDE
     Indication: OBESITY
     Dosage: ?          QUANTITY:10 INJECTION(S);?
     Route: 058
     Dates: start: 20160624, end: 20160704
  2. DRAMAMINE [Concomitant]
     Active Substance: DIMENHYDRINATE

REACTIONS (5)
  - Respiratory arrest [None]
  - Brain oedema [None]
  - Pulmonary embolism [None]
  - Inappropriate affect [None]
  - Unresponsive to stimuli [None]

NARRATIVE: CASE EVENT DATE: 20160704
